FAERS Safety Report 13091157 (Version 1)
Quarter: 2017Q1

REPORT INFORMATION
  Report Type: Spontaneous
  Country: US (occurrence: US)
  Receive Date: 20170106
  Receipt Date: 20170106
  Transmission Date: 20170428
  Serious: No
  Sender: FDA-Public Use
  Company Number: US-DRREDDYS-USA/USA/16/0077833

PATIENT
  Age: 23 Year
  Sex: Male
  Weight: 104.33 kg

DRUGS (3)
  1. HABITROL [Suspect]
     Active Substance: NICOTINE
  2. HABITROL [Suspect]
     Active Substance: NICOTINE
     Indication: SMOKING CESSATION THERAPY
     Route: 065
     Dates: start: 20160120
  3. HABITROL [Suspect]
     Active Substance: NICOTINE
     Route: 065
     Dates: end: 20160302

REACTIONS (3)
  - Aphthous ulcer [Recovering/Resolving]
  - Mouth ulceration [Recovering/Resolving]
  - Oropharyngeal pain [Recovering/Resolving]

NARRATIVE: CASE EVENT DATE: 201601
